FAERS Safety Report 18298363 (Version 1)
Quarter: 2020Q3

REPORT INFORMATION
  Report Type: Spontaneous
  Country: IT (occurrence: IT)
  Receive Date: 20200922
  Receipt Date: 20200922
  Transmission Date: 20201103
  Serious: Yes (Hospitalization)
  Sender: FDA-Public Use
  Company Number: IT-MYLANLABS-2020M1080611

PATIENT
  Age: 65 Year
  Sex: Male

DRUGS (2)
  1. CAPECITABINE. [Suspect]
     Active Substance: CAPECITABINE
     Indication: LUNG CANCER METASTATIC
     Dosage: UNK UNK, QD1.6 G/M2/DAY ON DAYS 1 TO 15, ADMINISTERED..
     Route: 065
     Dates: start: 20190926
  2. OXALIPLATIN. [Suspect]
     Active Substance: OXALIPLATIN
     Indication: LUNG CANCER METASTATIC
     Dosage: 104 MILLIGRAM/SQ. METER, QDON DAY 1; ADMINISTERED..
     Route: 065
     Dates: start: 20190926

REACTIONS (1)
  - Hyperammonaemic encephalopathy [Recovered/Resolved]

NARRATIVE: CASE EVENT DATE: 201910
